FAERS Safety Report 9283151 (Version 1)
Quarter: 2013Q2

REPORT INFORMATION
  Report Type: Spontaneous
  Country: US (occurrence: US)
  Receive Date: 20130510
  Receipt Date: 20130510
  Transmission Date: 20140414
  Serious: No
  Sender: FDA-Public Use
  Company Number: US-GLAXOSMITHKLINE-A0983233A

PATIENT
  Age: 66 Year
  Sex: Female

DRUGS (7)
  1. TYKERB [Suspect]
     Indication: BREAST CANCER
     Dosage: 1250MG PER DAY
     Route: 048
     Dates: start: 201106
  2. GLIPIZIDE [Concomitant]
  3. METFORMIN [Concomitant]
  4. ATENOLOL [Concomitant]
  5. ENALAPRIL [Concomitant]
  6. LEVOTHYROXINE [Concomitant]
  7. DIURETIC [Concomitant]

REACTIONS (3)
  - Dry skin [Not Recovered/Not Resolved]
  - Nail disorder [Unknown]
  - Onychoclasis [Unknown]
